FAERS Safety Report 4439620-7 (Version None)
Quarter: 2004Q3

REPORT INFORMATION
  Report Type: 
  Country: None (occurrence: None)
  Receive Date: 20040901
  Receipt Date: 20040901
  Transmission Date: 20050211
  Serious: Yes (Hospitalization)
  Sender: FDA-Public Use
  Company Number: None

PATIENT
  Sex: Female
  Weight: 47.6277 kg

DRUGS (3)
  1. TYLENOL [Suspect]
     Indication: SUICIDE ATTEMPT
     Dosage: PO, X 1 DOSE
     Route: 048
     Dates: start: 20040316
  2. ZOLOFT [Concomitant]
  3. ALLEGRA [Concomitant]

REACTIONS (2)
  - INTENTIONAL OVERDOSE [None]
  - SUICIDE ATTEMPT [None]
